FAERS Safety Report 25687404 (Version 1)
Quarter: 2025Q3

REPORT INFORMATION
  Report Type: Spontaneous
  Country: CN (occurrence: CN)
  Receive Date: 20250816
  Receipt Date: 20250816
  Transmission Date: 20251021
  Serious: Yes (Other)
  Sender: PRINSTON PHARMACEUTICAL
  Company Number: CN-PRINSTON PHARMACEUTICAL INC.-2025PRN00266

PATIENT
  Age: 56 Year

DRUGS (2)
  1. PEMETREXED DISODIUM [Suspect]
     Active Substance: PEMETREXED DISODIUM
     Indication: Metastases to meninges
     Route: 037
  2. CARBOPLATIN [Suspect]
     Active Substance: CARBOPLATIN
     Indication: Chemotherapy

REACTIONS (2)
  - Leukopenia [Unknown]
  - Hepatic enzyme increased [Unknown]
